FAERS Safety Report 19678232 (Version 1)
Quarter: 2021Q3

REPORT INFORMATION
  Report Type: Report from Study
  Country: NL (occurrence: NL)
  Receive Date: 20210809
  Receipt Date: 20210809
  Transmission Date: 20211014
  Serious: Yes (Hospitalization)
  Sender: FDA-Public Use
  Company Number: NL-TEVA-2021-NL-1940690

PATIENT
  Age: 82 Year
  Sex: Male

DRUGS (14)
  1. IRINOTECAN [Suspect]
     Active Substance: IRINOTECAN
     Dosage: D1 AND D15 OF 28?DAY CYCLE (180 MG/M2)
     Route: 042
     Dates: start: 20210611
  2. POTASSIUM PHOSPHATE DRINK [Concomitant]
     Indication: HYPOKALAEMIA
     Dosage: 75 ML DAILY;
     Dates: start: 20210623
  3. 5?FLUOROURACIL [Suspect]
     Active Substance: FLUOROURACIL
     Indication: NEOPLASM
     Dosage: D1 AND D15 OF 28?DAY CYCLE (400 MG/M2)
     Route: 040
     Dates: start: 20210611
  4. LERCANIDIPINE [Concomitant]
     Active Substance: LERCANIDIPINE
     Indication: HYPERTENSION
     Dosage: 20 MILLIGRAM DAILY;
     Route: 048
     Dates: start: 20210131
  5. POTASSIUM PHOSPHATE DRINK [Concomitant]
     Indication: HYPOPHOSPHATAEMIA
  6. THIAMINE. [Concomitant]
     Active Substance: THIAMINE
     Indication: PROPHYLAXIS
     Dosage: 100 MILLIGRAM DAILY;
     Route: 048
     Dates: start: 20210623
  7. LEUCOVORIN. [Suspect]
     Active Substance: LEUCOVORIN
     Indication: NEOPLASM
     Dosage: D1 AND D15 OF 28?DAY CYCLE (400 MG/M2)
     Route: 042
     Dates: start: 20210611
  8. ABBV?621 [Suspect]
     Active Substance: EFTOZANERMIN ALFA
     Dosage: D1 AND D15 OF 28?DAY CYCLE (3.75 MG/KG)
     Route: 042
     Dates: start: 20210611
  9. METOCLOPRAMIDE. [Concomitant]
     Active Substance: METOCLOPRAMIDE
     Dosage: 10 MILLIGRAM DAILY;
     Route: 048
     Dates: start: 20210618
  10. LOPERAMIDE [Concomitant]
     Active Substance: LOPERAMIDE
     Dosage: 2 MILLIGRAM DAILY;
     Route: 048
     Dates: start: 20210618
  11. OCTREOTIDE. [Concomitant]
     Active Substance: OCTREOTIDE
     Dosage: 300 MICROGRAM DAILY;
     Route: 058
     Dates: start: 20210624
  12. ENALAPRIL [Concomitant]
     Active Substance: ENALAPRIL
     Indication: HYPERTENSION
     Dosage: 20 MILLIGRAM DAILY;
     Route: 048
     Dates: start: 2017
  13. GRANISETRON [Concomitant]
     Active Substance: GRANISETRON
     Dosage: 1 MILLIGRAM DAILY;
     Route: 048
     Dates: start: 20210620
  14. SODIUMCHLORIDE [Concomitant]
     Dosage: 2 LITERS DAILY;
     Route: 042
     Dates: start: 20210620

REACTIONS (3)
  - Vomiting [Not Recovered/Not Resolved]
  - Diarrhoea [Not Recovered/Not Resolved]
  - Nausea [Not Recovered/Not Resolved]

NARRATIVE: CASE EVENT DATE: 20210719
